FAERS Safety Report 4476290-6 (Version None)
Quarter: 2004Q4

REPORT INFORMATION
  Report Type: 
  Country: None (occurrence: None)
  Receive Date: 20041016
  Receipt Date: 20040511
  Transmission Date: 20050328
  Serious: Yes (Disabling, Other)
  Sender: FDA-Public Use
  Company Number: US-MERCK-0405USA00722

PATIENT
  Age: 56 Year
  Sex: Male
  Weight: 80 kg

DRUGS (14)
  1. NORVASC [Concomitant]
     Route: 065
  2. ECOTRIN [Concomitant]
     Route: 065
  3. CALCIUM (UNSPECIFIED) [Concomitant]
     Route: 065
  4. MAGNESIUM (UNSPECIFIED) [Concomitant]
     Route: 065
  5. LOPRESSOR [Concomitant]
     Route: 065
  6. ALTACE [Concomitant]
     Route: 065
  7. ZOCOR [Suspect]
     Indication: HYPERCHOLESTEROLAEMIA
     Route: 048
     Dates: start: 20030701
  8. ZOCOR [Suspect]
     Route: 048
     Dates: start: 20020201, end: 20030701
  9. ZOCOR [Suspect]
     Route: 048
  10. ZOCOR [Suspect]
     Indication: CORONARY ARTERY DISEASE
     Route: 048
     Dates: start: 20030701
  11. ZOCOR [Suspect]
     Route: 048
     Dates: start: 20020201, end: 20030701
  12. ZOCOR [Suspect]
     Route: 048
  13. HYTRIN [Concomitant]
     Route: 065
  14. VITAMIN E [Concomitant]
     Route: 065

REACTIONS (3)
  - BACK PAIN [None]
  - MYALGIA [None]
  - MYOSITIS [None]
